FAERS Safety Report 13872930 (Version 1)
Quarter: 2017Q3

REPORT INFORMATION
  Report Type: Spontaneous
  Country: US (occurrence: US)
  Receive Date: 20170816
  Receipt Date: 20170816
  Transmission Date: 20171127
  Serious: No
  Sender: FDA-Public Use
  Company Number: US-TARO-2017TAR00005

PATIENT
  Sex: Female

DRUGS (1)
  1. TERBINAFINE CREAM 1% [Suspect]
     Active Substance: TERBINAFINE
     Indication: TINEA INFECTION
     Dosage: UNK UNK, 2X/DAY
     Route: 061
     Dates: start: 201701

REACTIONS (3)
  - Application site dryness [Not Recovered/Not Resolved]
  - Inappropriate schedule of drug administration [Unknown]
  - Expired product administered [Unknown]

NARRATIVE: CASE EVENT DATE: 201701
